FAERS Safety Report 12686788 (Version 1)
Quarter: 2016Q3

REPORT INFORMATION
  Report Type: Spontaneous
  Country: US (occurrence: US)
  Receive Date: 20160825
  Receipt Date: 20160825
  Transmission Date: 20161109
  Serious: No
  Sender: FDA-Public Use
  Company Number: US-JAZZ-2016-US-007144

PATIENT
  Sex: Female

DRUGS (51)
  1. XYREM [Suspect]
     Active Substance: SODIUM OXYBATE
     Indication: NARCOLEPSY
     Dosage: 2.25 G, BID
     Route: 048
     Dates: start: 200809, end: 200810
  2. LORAZEPAM. [Concomitant]
     Active Substance: LORAZEPAM
  3. BORON CITRATE [Concomitant]
  4. SUPER B COMPLEX WITH C [Concomitant]
  5. CLONAZEPAM. [Concomitant]
     Active Substance: CLONAZEPAM
  6. ALBUTEROL. [Concomitant]
     Active Substance: ALBUTEROL
  7. ATORVASTATIN [Concomitant]
     Active Substance: ATORVASTATIN
  8. CYCLOBENZAPRINE [Concomitant]
     Active Substance: CYCLOBENZAPRINE
  9. CYMBALTA [Concomitant]
     Active Substance: DULOXETINE HYDROCHLORIDE
  10. FISH OIL [Concomitant]
     Active Substance: FISH OIL
  11. INVEGA [Concomitant]
     Active Substance: PALIPERIDONE
  12. MODAFINIL. [Concomitant]
     Active Substance: MODAFINIL
  13. PANTOPRAZOLE SODIUM. [Concomitant]
     Active Substance: PANTOPRAZOLE SODIUM
  14. ZINC GLUCONATE [Concomitant]
     Active Substance: ZINC GLUCONATE
  15. FEXOFENADINE HCL [Concomitant]
     Active Substance: FEXOFENADINE HYDROCHLORIDE
  16. GEMFIBROZIL. [Concomitant]
     Active Substance: GEMFIBROZIL
  17. METOCLOPRAMIDE. [Concomitant]
     Active Substance: METOCLOPRAMIDE
  18. NASACORT [Concomitant]
     Active Substance: TRIAMCINOLONE ACETONIDE
  19. TOPAMAX [Concomitant]
     Active Substance: TOPIRAMATE
  20. TRICOR [Concomitant]
     Active Substance: FENOFIBRATE
  21. ATARAX [Concomitant]
     Active Substance: HYDROXYZINE\HYDROXYZINE HYDROCHLORIDE
  22. BIOTIN [Concomitant]
     Active Substance: BIOTIN
  23. CALCIUM +D [Concomitant]
     Active Substance: CALCIUM\VITAMIN D
  24. CELEBREX [Concomitant]
     Active Substance: CELECOXIB
  25. CLARITIN [Concomitant]
     Active Substance: LORATADINE
  26. MIRAPEX [Concomitant]
     Active Substance: PRAMIPEXOLE DIHYDROCHLORIDE
  27. ROPINIROLE HCL [Concomitant]
     Active Substance: ROPINIROLE HYDROCHLORIDE
  28. SPIRIVA [Concomitant]
     Active Substance: TIOTROPIUM BROMIDE MONOHYDRATE
  29. XYREM [Suspect]
     Active Substance: SODIUM OXYBATE
     Dosage: DOSE ADJUSTMENTS
     Route: 048
  30. XYREM [Suspect]
     Active Substance: SODIUM OXYBATE
     Dosage: 4 G, BID
     Route: 048
     Dates: start: 201208
  31. FUROSEMIDE. [Concomitant]
     Active Substance: FUROSEMIDE
  32. IRON [Concomitant]
     Active Substance: IRON
  33. MULTIVITAMINS [Concomitant]
     Active Substance: VITAMINS
  34. VITAMIN C [Concomitant]
     Active Substance: ASCORBIC ACID
  35. ZANTAC [Concomitant]
     Active Substance: RANITIDINE HYDROCHLORIDE
  36. ASPIRIN. [Concomitant]
     Active Substance: ASPIRIN
  37. FIBERCON [Concomitant]
     Active Substance: CALCIUM POLYCARBOPHIL
  38. VITAMIN D3 [Concomitant]
     Active Substance: CHOLECALCIFEROL
  39. CHROMIUM PICOLINATE [Concomitant]
     Active Substance: CHROMIUM PICOLINATE
  40. GLUCOSAMINE AND CHONDROITIN [Concomitant]
     Active Substance: CHONDROITIN SULFATE (BOVINE)\GLUCOSAMINE HYDROCHLORIDE
  41. LEVOTHYROXINE. [Concomitant]
     Active Substance: LEVOTHYROXINE
  42. TIZANIDINE HCL [Concomitant]
     Active Substance: TIZANIDINE HYDROCHLORIDE
  43. GABAPENTIN. [Concomitant]
     Active Substance: GABAPENTIN
  44. BUDEPRION [Suspect]
     Active Substance: BUPROPION HYDROCHLORIDE
     Indication: PRODUCT USED FOR UNKNOWN INDICATION
  45. ALENDRONATE SODIUM. [Concomitant]
     Active Substance: ALENDRONATE SODIUM
  46. CHLORZOXAZONE. [Concomitant]
     Active Substance: CHLORZOXAZONE
  47. L-ARGININE [Concomitant]
     Active Substance: ARGININE
  48. MAGNESIUM OXIDE. [Concomitant]
     Active Substance: MAGNESIUM OXIDE
  49. TYLENOL EXTRA STRENGTH [Concomitant]
     Active Substance: ACETAMINOPHEN
  50. VESICARE [Concomitant]
     Active Substance: SOLIFENACIN SUCCINATE
  51. VITAMIN A [Concomitant]
     Active Substance: VITAMIN A

REACTIONS (11)
  - Bladder disorder [Unknown]
  - Pruritus [Unknown]
  - Somnolence [Unknown]
  - Pre-existing condition improved [Unknown]
  - Furuncle [Unknown]
  - Weight decreased [Unknown]
  - Depression [Unknown]
  - Skin disorder [Unknown]
  - Feeling abnormal [Unknown]
  - Ankle fracture [Unknown]
  - Post-traumatic stress disorder [Unknown]
